FAERS Safety Report 16730890 (Version 2)
Quarter: 2019Q3

REPORT INFORMATION
  Report Type: Report from Study
  Country: MX (occurrence: MX)
  Receive Date: 20190822
  Receipt Date: 20190923
  Transmission Date: 20191005
  Serious: Yes (Other)
  Sender: FDA-Public Use
  Company Number: PHHY2019MX195774

PATIENT
  Sex: Male
  Weight: 70 kg

DRUGS (7)
  1. RIVOTRIL [Concomitant]
     Active Substance: CLONAZEPAM
     Indication: SEIZURE
     Dosage: 1 DF, QD
     Route: 048
     Dates: start: 1990
  2. SODIUM BICARBONATE. [Concomitant]
     Active Substance: SODIUM BICARBONATE
     Indication: BLOOD CALCIUM ABNORMAL
     Dosage: 3 DF, QD
     Route: 048
     Dates: start: 2016
  3. TEGRETOL [Suspect]
     Active Substance: CARBAMAZEPINE
     Indication: SEIZURE
     Dosage: 2 DF, QD
     Route: 048
     Dates: start: 1973, end: 1979
  4. TURAZIVE [Concomitant]
     Active Substance: FEBUXOSTAT
     Indication: BLOOD UREA DECREASED
     Dosage: 1 DF, Q3W
     Route: 048
     Dates: start: 2016
  5. COZAAR [Concomitant]
     Active Substance: LOSARTAN POTASSIUM
     Indication: BLOOD PRESSURE INCREASED
     Dosage: 0.5 DF, QD
     Route: 048
     Dates: start: 2016
  6. TEGRETOL [Suspect]
     Active Substance: CARBAMAZEPINE
     Dosage: 2 DF, QD
     Route: 048
     Dates: start: 1989
  7. TEGRETOL [Suspect]
     Active Substance: CARBAMAZEPINE
     Dosage: 1 DF, QD
     Route: 048
     Dates: start: 2000

REACTIONS (5)
  - Leukopenia [Recovering/Resolving]
  - Anaemia [Recovering/Resolving]
  - Fatigue [Recovering/Resolving]
  - Prostatic disorder [Recovering/Resolving]
  - Renal impairment [Not Recovered/Not Resolved]

NARRATIVE: CASE EVENT DATE: 2012
